FAERS Safety Report 9174724 (Version 1)
Quarter: 2013Q1

REPORT INFORMATION
  Report Type: Spontaneous
  Country: US (occurrence: None)
  Receive Date: 20130318
  Receipt Date: 20130318
  Transmission Date: 20140127
  Serious: Yes (Life-Threatening, Hospitalization)
  Sender: FDA-Public Use
  Company Number: FK201300789

PATIENT
  Age: 47 Year
  Sex: Male

DRUGS (5)
  1. AZITHROMYCIN [Suspect]
     Indication: UPPER RESPIRATORY TRACT INFECTION
  2. METHADONE(METHADONE) [Suspect]
     Dosage: 3 IN 1 D
  3. LISINOPRIL/HYDROCHLOROTHIAZIDE (PRINZI /00977901/) [Concomitant]
  4. ACETAMINOPHEN/DEXTROMETHORPHAN/DOXYLAMINE [Concomitant]
  5. BENZONATATE (BENZONATATE) [Concomitant]

REACTIONS (6)
  - Cardiac arrest [None]
  - Drug interaction [None]
  - Electrocardiogram QT prolonged [None]
  - Palpitations [None]
  - Loss of consciousness [None]
  - Pulse absent [None]
